FAERS Safety Report 7372760-1 (Version None)
Quarter: 2011Q1

REPORT INFORMATION
  Report Type: 
  Country: None (occurrence: None)
  Receive Date: 20110324
  Receipt Date: 20110311
  Transmission Date: 20110831
  Serious: Yes (Other)
  Sender: FDA-Public Use
  Company Number: PHHY2011JP20746

PATIENT
  Age: 67 Year
  Sex: Female

DRUGS (3)
  1. AMANTADINE HCL [Suspect]
     Indication: PARKINSONISM
     Dosage: 100 MG, DAILY
  2. AMANTADINE HCL [Suspect]
     Dosage: 100 MG, DAILY
  3. LEVODOPA [Concomitant]
     Indication: PARKINSONISM
     Dosage: 50 MG, DAILY

REACTIONS (3)
  - MUSCULOSKELETAL STIFFNESS [None]
  - ELECTROMYOGRAM ABNORMAL [None]
  - NEUROMYOPATHY [None]
